FAERS Safety Report 23861632 (Version 2)
Quarter: 2024Q3

REPORT INFORMATION
  Report Type: Report from Study
  Country: US (occurrence: US)
  Receive Date: 20240516
  Receipt Date: 20240930
  Transmission Date: 20241016
  Serious: Yes (Other)
  Sender: ROCHE
  Company Number: US-ROCHE-3561839

PATIENT
  Age: 79 Year
  Sex: Female

DRUGS (31)
  1. ACTEMRA [Suspect]
     Active Substance: TOCILIZUMAB
     Indication: Rheumatoid arthritis
     Dosage: INJECT THE CONTENTS OF ONE DEVICE UNDER THE SKIN ONCE WEEKLY
     Route: 058
  2. ACTEMRA [Suspect]
     Active Substance: TOCILIZUMAB
     Indication: Insomnia
  3. ACTEMRA [Suspect]
     Active Substance: TOCILIZUMAB
     Indication: Infection
  4. ACTEMRA [Suspect]
     Active Substance: TOCILIZUMAB
     Indication: Haemoglobin increased
  5. ACTEMRA [Suspect]
     Active Substance: TOCILIZUMAB
     Indication: Transaminases increased
  6. ACTEMRA [Suspect]
     Active Substance: TOCILIZUMAB
     Indication: Myalgia
  7. ACTEMRA [Suspect]
     Active Substance: TOCILIZUMAB
     Indication: Osteoarthritis
  8. ACTEMRA [Suspect]
     Active Substance: TOCILIZUMAB
     Indication: Raynaud^s phenomenon
  9. ACTEMRA [Suspect]
     Active Substance: TOCILIZUMAB
     Indication: Periarthritis
  10. ACTEMRA [Suspect]
     Active Substance: TOCILIZUMAB
     Indication: Immunosuppressant drug therapy
  11. ACTEMRA [Suspect]
     Active Substance: TOCILIZUMAB
     Indication: Drug therapy
  12. ACTEMRA [Suspect]
     Active Substance: TOCILIZUMAB
     Indication: Hypertension
  13. ACTEMRA [Suspect]
     Active Substance: TOCILIZUMAB
     Indication: Obesity
  14. COENZYME Q10 [Concomitant]
     Active Substance: DIETARY SUPPLEMENT\UBIDECARENONE
  15. FARXIGA [Concomitant]
     Active Substance: DAPAGLIFLOZIN PROPANEDIOL
  16. CALCIUM [Concomitant]
     Active Substance: CALCIUM
  17. ATENOLOL [Concomitant]
     Active Substance: ATENOLOL
  18. FOLIC ACID [Concomitant]
     Active Substance: FOLIC ACID
  19. ASPIRIN [Concomitant]
     Active Substance: ASPIRIN
  20. SPIRONOLACTONE [Concomitant]
     Active Substance: SPIRONOLACTONE
  21. OZEMPIC [Concomitant]
     Active Substance: SEMAGLUTIDE
  22. DICLOFENAC SODIUM [Concomitant]
     Active Substance: DICLOFENAC\DICLOFENAC SODIUM
  23. AMBIEN [Concomitant]
     Active Substance: ZOLPIDEM TARTRATE
  24. GABAPENTIN [Concomitant]
     Active Substance: GABAPENTIN
  25. VOLTAREN [Concomitant]
     Active Substance: DICLOFENAC SODIUM
  26. LOSARTAN POTASSIUM [Concomitant]
     Active Substance: LOSARTAN POTASSIUM
  27. AMOXICILLIN [Concomitant]
     Active Substance: AMOXICILLIN
  28. VITAMIN B12 [Concomitant]
     Active Substance: CYANOCOBALAMIN
  29. METOPROLOL SUCCINATE [Concomitant]
     Active Substance: METOPROLOL SUCCINATE
  30. MELATONIN [Concomitant]
     Active Substance: MELATONIN
  31. LIPITOR [Concomitant]
     Active Substance: ATORVASTATIN CALCIUM

REACTIONS (2)
  - Breast cancer [Recovered/Resolved]
  - Arthritis infective [Unknown]

NARRATIVE: CASE EVENT DATE: 20231001
